FAERS Safety Report 7224820-3 (Version None)
Quarter: 2011Q1

REPORT INFORMATION
  Report Type: 
  Country: None (occurrence: None)
  Receive Date: 20110103
  Receipt Date: 20101216
  Transmission Date: 20110831
  Serious: Yes (Life-Threatening)
  Sender: FDA-Public Use
  Company Number: 012387

PATIENT
  Age: 53 Year
  Sex: Female

DRUGS (3)
  1. FLUDARABINE PHOSPHATE [Concomitant]
  2. BUSULFEX [Suspect]
     Indication: STEM CELL TRANSPLANT
     Dosage: 1 MG/KG, DAILY D OSE, INTRAVENOUS
     Route: 042
     Dates: start: 20071021, end: 20071022
  3. CAMPATH USA (ALEMTUZUMAB) [Concomitant]

REACTIONS (1)
  - EPSTEIN-BARR VIRUS INFECTION [None]
